FAERS Safety Report 8578510 (Version 4)
Quarter: 2013Q3

REPORT INFORMATION
  Report Type: Spontaneous
  Country: US (occurrence: US)
  Receive Date: 20120524
  Receipt Date: 20130724
  Transmission Date: 20140515
  Serious: Yes (Hospitalization, Other)
  Sender: FDA-Public Use
  Company Number: US-ASTRAZENECA-2012SE31130

PATIENT
  Age: 40 Year
  Sex: Female
  Weight: 111.1 kg

DRUGS (17)
  1. NEXIUM [Suspect]
     Indication: GASTROOESOPHAGEAL REFLUX DISEASE
     Route: 048
     Dates: start: 200908
  2. PRILOSEC OTC [Suspect]
     Route: 048
  3. SEROQUEL [Suspect]
     Indication: BIPOLAR DISORDER
     Route: 048
     Dates: start: 2008
  4. SEROQUEL [Suspect]
     Indication: SLEEP DISORDER
     Route: 048
     Dates: start: 2008
  5. SEROQUEL [Suspect]
     Indication: BIPOLAR DISORDER
     Route: 048
     Dates: start: 2009
  6. SEROQUEL [Suspect]
     Indication: SLEEP DISORDER
     Route: 048
     Dates: start: 2009
  7. SEROQUEL [Suspect]
     Indication: BIPOLAR DISORDER
     Route: 048
  8. SEROQUEL [Suspect]
     Indication: SLEEP DISORDER
     Route: 048
  9. SEROQUEL [Suspect]
     Indication: BIPOLAR DISORDER
     Route: 048
  10. SEROQUEL [Suspect]
     Indication: SLEEP DISORDER
     Route: 048
  11. SEROQUEL [Suspect]
     Indication: BIPOLAR DISORDER
     Route: 048
  12. SEROQUEL [Suspect]
     Indication: SLEEP DISORDER
     Route: 048
  13. ZANAX [Concomitant]
     Indication: ADJUSTMENT DISORDER
  14. ZANAX [Concomitant]
     Indication: ADJUSTMENT DISORDER
  15. HYDROCODONE [Concomitant]
     Indication: ANALGESIC THERAPY
     Dosage: 10-325
  16. NORCO [Concomitant]
     Indication: ABDOMINAL PAIN UPPER
     Dosage: 10-325 MG PRN
     Dates: start: 2009
  17. XANAX [Concomitant]
     Indication: ANXIETY
     Dates: start: 2009

REACTIONS (19)
  - Intestinal perforation [Unknown]
  - Hernia [Unknown]
  - Gastrooesophageal reflux disease [Unknown]
  - Drug withdrawal syndrome [Unknown]
  - Emotional disorder [Unknown]
  - Crying [Unknown]
  - Disturbance in social behaviour [Unknown]
  - Insomnia [Unknown]
  - Social avoidant behaviour [Unknown]
  - Dyspepsia [Unknown]
  - Nausea [Unknown]
  - Malaise [Unknown]
  - Malaise [Unknown]
  - Vomiting [Unknown]
  - Formication [Unknown]
  - Psychomotor hyperactivity [Unknown]
  - Malaise [Unknown]
  - Drug ineffective [Unknown]
  - Drug dose omission [Unknown]
